APPROVED DRUG PRODUCT: LEVETIRACETAM
Active Ingredient: LEVETIRACETAM
Strength: 750MG
Dosage Form/Route: TABLET, EXTENDED RELEASE;ORAL
Application: A202095 | Product #001
Applicant: LOTUS PHARMACEUTICAL CO LTD NANTOU PLANT
Approved: Jun 6, 2016 | RLD: No | RS: No | Type: DISCN